FAERS Safety Report 10413972 (Version 1)
Quarter: 2014Q3

REPORT INFORMATION
  Report Type: Spontaneous
  Country: GB (occurrence: GB)
  Receive Date: 20140827
  Receipt Date: 20140827
  Transmission Date: 20150326
  Serious: Yes (Other)
  Sender: FDA-Public Use
  Company Number: GB-BAXTER-2014BAX049875

PATIENT
  Age: 49 Year
  Sex: Male

DRUGS (3)
  1. BENDROFLUMETHIAZIDE [Suspect]
     Active Substance: BENDROFLUMETHIAZIDE
     Indication: ACNE CONGLOBATA
     Route: 065
  2. CIPROFLOXACIN. [Suspect]
     Active Substance: CIPROFLOXACIN
     Indication: ACNE CONGLOBATA
     Dosage: INTERMITTENT COURSES OVER 6 MONTHS
     Route: 065
  3. ADALIMUMAB [Suspect]
     Active Substance: ADALIMUMAB
     Indication: ACNE CONGLOBATA
     Route: 058

REACTIONS (1)
  - Panniculitis [Recovered/Resolved]
